FAERS Safety Report 25289484 (Version 4)
Quarter: 2025Q2

REPORT INFORMATION
  Report Type: Spontaneous
  Country: US (occurrence: US)
  Receive Date: 20250509
  Receipt Date: 20250530
  Transmission Date: 20250716
  Serious: Yes (Hospitalization)
  Sender: VIIV
  Company Number: US-VIIV HEALTHCARE-US2025053847

PATIENT

DRUGS (4)
  1. TRIUMEQ [Suspect]
     Active Substance: ABACAVIR SULFATE\DOLUTEGRAVIR SODIUM\LAMIVUDINE
     Indication: HIV infection
     Dosage: 1 DF, QD, 600 MG/50MG/300 MG
     Route: 048
     Dates: start: 201501
  2. ESTRADIOL [Concomitant]
     Active Substance: ESTRADIOL
     Indication: Hormone replacement therapy
     Dosage: 1 MG, QD
     Route: 048
     Dates: start: 200301
  3. LOSARTAN [Concomitant]
     Active Substance: LOSARTAN
     Indication: Blood pressure measurement
     Dosage: 25 MG, QD
     Route: 048
     Dates: start: 20150101
  4. AMLODIPINE [Concomitant]
     Active Substance: AMLODIPINE BESYLATE
     Indication: Blood pressure measurement
     Dosage: 10 MG, QD
     Route: 048
     Dates: start: 201501

REACTIONS (8)
  - Nerve injury [Unknown]
  - Intervertebral disc injury [Unknown]
  - Pain [Not Recovered/Not Resolved]
  - Hot flush [Unknown]
  - Hyperhidrosis [Unknown]
  - Neuralgia [Unknown]
  - Feeling hot [Unknown]
  - Mobility decreased [Not Recovered/Not Resolved]
